FAERS Safety Report 7473868-2 (Version None)
Quarter: 2011Q2

REPORT INFORMATION
  Report Type: 
  Country: None (occurrence: None)
  Receive Date: 20110511
  Receipt Date: 20110329
  Transmission Date: 20111010
  Serious: Yes (Other)
  Sender: FDA-Public Use
  Company Number: US-BAYER-201039467NA

PATIENT
  Sex: Female

DRUGS (6)
  1. EFFEXOR [Concomitant]
     Dosage: 37.5 MG, UNK
     Dates: end: 20090101
  2. PANTOPRAZOLE [Concomitant]
     Dosage: 40 MG, UNK
     Dates: end: 20080101
  3. PREVACID [Concomitant]
     Dosage: 30 MG, UNK
     Dates: end: 20080101
  4. DROSPIRENONE AND ETHINYL ESTRADIOL [Suspect]
     Indication: CONTRACEPTION
     Dosage: UNK UNK, QD
     Route: 048
     Dates: start: 20090101
  5. YASMIN [Suspect]
     Indication: PRODUCT USED FOR UNKNOWN INDICATION
     Route: 048
  6. YAZ [Suspect]
     Indication: CONTRACEPTION
     Dosage: UNK UNK, QD
     Route: 048
     Dates: start: 20070101, end: 20090101

REACTIONS (3)
  - CHOLECYSTITIS CHRONIC [None]
  - GALLBLADDER NON-FUNCTIONING [None]
  - INJURY [None]
